FAERS Safety Report 8662894 (Version 2)
Quarter: 2012Q4

REPORT INFORMATION
  Report Type: 
  Country: CA (occurrence: CA)
  Receive Date: 20120712
  Receipt Date: 20121212
  Transmission Date: 20130627
  Serious: Yes (Death)
  Sender: FDA-Public Use
  Company Number: CA-SANOFI-AVENTIS-2012SA048219

PATIENT
  Age: 68 Year
  Sex: Female

DRUGS (6)
  1. TAXOTERE [Suspect]
     Indication: NODE-POSITIVE BREAST CANCER
     Dosage: form: solution intravenous
     Route: 042
     Dates: start: 2005, end: 2005
  2. AVELOX [Concomitant]
  3. CANCIDAS [Concomitant]
  4. GANCICLOVIR [Concomitant]
  5. SEPTRA [Concomitant]
  6. TAZOCIN [Concomitant]

REACTIONS (4)
  - Multi-organ failure [Fatal]
  - Pneumonitis [Unknown]
  - Blood alkaline phosphatase increased [Unknown]
  - Blood bilirubin increased [Unknown]
